FAERS Safety Report 23097575 (Version 2)
Quarter: 2024Q1

REPORT INFORMATION
  Report Type: Report from Study
  Country: CO (occurrence: CO)
  Receive Date: 20231023
  Receipt Date: 20240222
  Transmission Date: 20240410
  Serious: Yes (Disabling)
  Sender: FDA-Public Use
  Company Number: CO-MYLANLABS-2023M1111556

PATIENT
  Age: 9 Year
  Sex: Female
  Weight: 10.6 kg

DRUGS (2)
  1. CYSTAGON [Suspect]
     Active Substance: CYSTEAMINE BITARTRATE
     Indication: Cystinosis
     Dosage: 900 MILLIGRAM, QD
     Route: 048
     Dates: start: 20180516
  2. CYSTADROPS [Suspect]
     Active Substance: CYSTEAMINE HYDROCHLORIDE
     Indication: Cystinosis
     Dosage: 2 GTT DROPS, QID (1 DROP IN EACH EYE 4 TIME A DAY DURING WAKING HOURS)
     Route: 047
     Dates: start: 20180721

REACTIONS (1)
  - Deafness bilateral [Not Recovered/Not Resolved]

NARRATIVE: CASE EVENT DATE: 20230601
